FAERS Safety Report 25624467 (Version 2)
Quarter: 2025Q3

REPORT INFORMATION
  Report Type: Spontaneous
  Country: MX (occurrence: MX)
  Receive Date: 20250730
  Receipt Date: 20250815
  Transmission Date: 20251021
  Serious: Yes (Hospitalization, Other)
  Sender: MERCK SHARP & DOHME LLC
  Company Number: MX-009507513-2314050

PATIENT
  Age: 53 Year
  Sex: Female
  Weight: 62 kg

DRUGS (7)
  1. EMEND (FOSAPREPITANT DIMEGLUMINE) [Suspect]
     Active Substance: FOSAPREPITANT DIMEGLUMINE
     Indication: Premedication
     Route: 042
     Dates: start: 20250716, end: 20250716
  2. CHLOROPYRAMINE [Suspect]
     Active Substance: CHLOROPYRAMINE
     Indication: Chemotherapy side effect prophylaxis
     Route: 042
     Dates: start: 20250716, end: 20250716
  3. DEXAMETHASONE [Suspect]
     Active Substance: DEXAMETHASONE
     Indication: Chemotherapy side effect prophylaxis
     Route: 042
     Dates: start: 20250716, end: 20250716
  4. PALONOSETRON [Suspect]
     Active Substance: PALONOSETRON
     Indication: Chemotherapy side effect prophylaxis
     Route: 042
     Dates: start: 20250716, end: 20250716
  5. IRINOTECAN [Suspect]
     Active Substance: IRINOTECAN
     Indication: Gastric cancer
     Route: 048
     Dates: start: 20250716, end: 20250716
  6. RAMUCIRUMAB [Suspect]
     Active Substance: RAMUCIRUMAB
     Indication: Gastric cancer
     Route: 048
     Dates: start: 20250716, end: 20250716
  7. FLUOROURACIL [Suspect]
     Active Substance: FLUOROURACIL
     Indication: Gastric cancer
     Route: 048
     Dates: start: 20250716, end: 20250718

REACTIONS (2)
  - Oncologic complication [Unknown]
  - Throat irritation [Recovered/Resolved]

NARRATIVE: CASE EVENT DATE: 20250101
